FAERS Safety Report 6209965-9 (Version None)
Quarter: 2009Q2

REPORT INFORMATION
  Report Type: 
  Country: None (occurrence: None)
  Receive Date: 20090601
  Receipt Date: 20090518
  Transmission Date: 20091009
  Serious: Yes (Hospitalization)
  Sender: FDA-Public Use
  Company Number: FR-PFIZER INC-2009204299

PATIENT
  Age: 90 Year

DRUGS (13)
  1. XANAX [Suspect]
     Indication: ANXIETY
     Dosage: UNK
     Route: 048
     Dates: start: 20090401, end: 20090414
  2. OROKEN [Suspect]
     Indication: URINARY TRACT INFECTION
     Dosage: UNK
     Route: 048
     Dates: start: 20090412, end: 20090414
  3. VASTAREL [Suspect]
     Dosage: UNK
     Route: 048
     Dates: end: 20090414
  4. INSULATARD [Concomitant]
     Dosage: UNK
  5. AVODART [Concomitant]
     Dosage: 1 DF, 1X/DAY
  6. TAMSULOSIN [Concomitant]
     Dosage: 1 DF, 1X/DAY
     Dates: end: 20090414
  7. ZOLPIDEM [Concomitant]
     Dosage: 1 DF, 1X/DAY
  8. MOXYDAR [Concomitant]
     Dosage: 3 DF, 2X/DAY
  9. PREXIDINE [Concomitant]
     Dosage: UNK
  10. CYTEAL [Concomitant]
     Dosage: UNK
  11. HEXALYSE [Concomitant]
     Dosage: UNK
  12. PARACETAMOL [Concomitant]
     Dosage: UNK
  13. LOCOID [Concomitant]
     Dosage: UNK

REACTIONS (2)
  - NEUTROPENIA [None]
  - THROMBOCYTOPENIA [None]
